FAERS Safety Report 9586942 (Version 1)
Quarter: 2013Q4

REPORT INFORMATION
  Report Type: Spontaneous
  Country: US (occurrence: US)
  Receive Date: 20131003
  Receipt Date: 20131003
  Transmission Date: 20140711
  Serious: Yes (Hospitalization, Other)
  Sender: FDA-Public Use
  Company Number: US-PFIZER INC-2013282370

PATIENT
  Sex: Male

DRUGS (3)
  1. ZOLOFT [Suspect]
     Dosage: UNK
  2. LATUDA [Suspect]
     Dosage: UNK
     Dates: end: 201307
  3. REMERON [Suspect]
     Dosage: UNK

REACTIONS (3)
  - Serotonin syndrome [Unknown]
  - Back disorder [Unknown]
  - Pain [Unknown]
